FAERS Safety Report 20529327 (Version 13)
Quarter: 2022Q4

REPORT INFORMATION
  Report Type: Spontaneous
  Country: JP (occurrence: JP)
  Receive Date: 20220228
  Receipt Date: 20221204
  Transmission Date: 20230113
  Serious: Yes (Hospitalization, Other)
  Sender: FDA-Public Use
  Company Number: JP-BRISTOL-MYERS SQUIBB COMPANY-BMS-2022-028632

PATIENT
  Age: 74 Year
  Sex: Male
  Weight: 67 kg

DRUGS (12)
  1. YERVOY [Suspect]
     Active Substance: IPILIMUMAB
     Indication: Non-small cell lung cancer recurrent
     Dosage: TOTAL NUMBER OF ADMINISTRATIONS 5 TIMES
     Route: 041
     Dates: start: 20211014, end: 202204
  2. OPDIVO [Suspect]
     Active Substance: NIVOLUMAB
     Indication: Non-small cell lung cancer recurrent
     Route: 041
     Dates: start: 20211014, end: 202204
  3. OPDIVO [Suspect]
     Active Substance: NIVOLUMAB
     Dosage: TOTAL NUMBER OF ADMINISTRATIONS 11 TIMES (RESTARTED AT 240 MG FROM JULY 1)
     Route: 041
     Dates: start: 20220701, end: 20220805
  4. CARBOPLATIN [Concomitant]
     Active Substance: CARBOPLATIN
     Indication: Non-small cell lung cancer recurrent
     Dosage: 350 MG
     Route: 065
     Dates: start: 20211014, end: 20211125
  5. PEMETREXED [Concomitant]
     Active Substance: PEMETREXED
     Indication: Non-small cell lung cancer recurrent
     Dosage: 900 MG
     Route: 065
     Dates: start: 20211014, end: 20211125
  6. ATORVASTATIN [Concomitant]
     Active Substance: ATORVASTATIN
     Indication: Product used for unknown indication
     Dosage: UNK
     Route: 065
  7. NOVORAPID [Concomitant]
     Active Substance: INSULIN ASPART
     Indication: Product used for unknown indication
     Dosage: UNK
     Route: 065
  8. LEVEMIR [Concomitant]
     Active Substance: INSULIN DETEMIR
     Indication: Product used for unknown indication
     Dosage: UNK
     Route: 065
  9. CODEINE [Concomitant]
     Active Substance: CODEINE
     Indication: Product used for unknown indication
     Dosage: UNK
     Route: 065
  10. CARBIMAZOLE [Concomitant]
     Active Substance: CARBIMAZOLE
     Indication: Product used for unknown indication
     Dosage: UNK
     Route: 065
  11. HUSTAZOL [Concomitant]
     Indication: Product used for unknown indication
     Dosage: UNK
     Route: 065
  12. MAGNOZONE [MAGNESIUM OXIDE] [Concomitant]
     Indication: Product used for unknown indication
     Dosage: UNK
     Route: 065

REACTIONS (3)
  - Colitis [Recovered/Resolved]
  - Hypopituitarism [Recovered/Resolved]
  - Thyroid disorder [Recovering/Resolving]

NARRATIVE: CASE EVENT DATE: 20211126
